FAERS Safety Report 11307182 (Version 4)
Quarter: 2015Q3

REPORT INFORMATION
  Report Type: Report from Study
  Country: PA (occurrence: PA)
  Receive Date: 20150723
  Receipt Date: 20150928
  Transmission Date: 20151125
  Serious: No
  Sender: FDA-Public Use
  Company Number: PHHY2015PA050257

PATIENT
  Sex: Female
  Weight: 82.99 kg

DRUGS (2)
  1. GILENYA [Suspect]
     Active Substance: FINGOLIMOD HYDROCHLORIDE
     Indication: MULTIPLE SCLEROSIS
     Dosage: 0.5 MG, QD
     Route: 048
     Dates: start: 20150423
  2. LAMOTRIGINE. [Concomitant]
     Active Substance: LAMOTRIGINE
     Indication: PRODUCT USED FOR UNKNOWN INDICATION
     Dosage: 100 MG, BID
     Route: 065

REACTIONS (7)
  - Eye pain [Recovering/Resolving]
  - Ocular hyperaemia [Unknown]
  - Musculoskeletal discomfort [Unknown]
  - Radicular pain [Unknown]
  - Tunnel vision [Unknown]
  - Headache [Unknown]
  - Vision blurred [Unknown]
